FAERS Safety Report 25708297 (Version 1)
Quarter: 2025Q3

REPORT INFORMATION
  Report Type: Spontaneous
  Country: US (occurrence: US)
  Receive Date: 20250821
  Receipt Date: 20250821
  Transmission Date: 20251021
  Serious: Yes (Other)
  Sender: SANOFI AVENTIS
  Company Number: US-SA-2025SA246286

PATIENT
  Sex: Female

DRUGS (5)
  1. KEVZARA [Suspect]
     Active Substance: SARILUMAB
     Indication: Polymyalgia rheumatica
     Dosage: 200 MG, QOW
     Route: 058
  2. VITAMINS NOS [Concomitant]
     Active Substance: VITAMINS
  3. CELECOXIB [Concomitant]
     Active Substance: CELECOXIB
  4. PREDNISONE [Concomitant]
     Active Substance: PREDNISONE
  5. IRON [Concomitant]
     Active Substance: IRON

REACTIONS (10)
  - Polymyalgia rheumatica [Not Recovered/Not Resolved]
  - Pain in extremity [Not Recovered/Not Resolved]
  - Aphthous ulcer [Not Recovered/Not Resolved]
  - Cough [Not Recovered/Not Resolved]
  - Rhinorrhoea [Not Recovered/Not Resolved]
  - Oropharyngeal pain [Not Recovered/Not Resolved]
  - Nasal congestion [Not Recovered/Not Resolved]
  - Rhinalgia [Not Recovered/Not Resolved]
  - Condition aggravated [Not Recovered/Not Resolved]
  - Blood cholesterol increased [Not Recovered/Not Resolved]
